FAERS Safety Report 22766945 (Version 2)
Quarter: 2024Q4

REPORT INFORMATION
  Report Type: Report from Study
  Country: US (occurrence: US)
  Receive Date: 20230731
  Receipt Date: 20241022
  Transmission Date: 20250115
  Serious: Yes (Other)
  Sender: JAZZ
  Company Number: US-JAZZ PHARMACEUTICALS-2022-US-014995

PATIENT
  Age: 16 Year
  Sex: Female

DRUGS (5)
  1. XYWAV [Suspect]
     Active Substance: CALCIUM OXYBATE\MAGNESIUM OXYBATE\POTASSIUM OXYBATE\SODIUM OXYBATE
     Indication: Narcolepsy
     Dosage: 3.75 GRAM, BID
  2. XYWAV [Suspect]
     Active Substance: CALCIUM OXYBATE\MAGNESIUM OXYBATE\POTASSIUM OXYBATE\SODIUM OXYBATE
     Indication: Cataplexy
     Dosage: 5.5 GRAM
  3. XYWAV [Suspect]
     Active Substance: CALCIUM OXYBATE\MAGNESIUM OXYBATE\POTASSIUM OXYBATE\SODIUM OXYBATE
     Indication: Somnolence
     Dosage: 3.5 GRAM, BID
  4. DAYTIME COUGH + COLD [Concomitant]
     Indication: Product used for unknown indication
     Dosage: UNK
     Dates: start: 20211028
  5. RITALIN [Concomitant]
     Active Substance: METHYLPHENIDATE HYDROCHLORIDE
     Indication: Product used for unknown indication
     Dosage: UNK
     Dates: start: 20230510

REACTIONS (13)
  - Respiratory depression [Unknown]
  - COVID-19 [Unknown]
  - Tonsillitis [Unknown]
  - Pharyngeal swelling [Unknown]
  - Dehydration [Unknown]
  - Scar [Unknown]
  - Nasal congestion [Unknown]
  - Vomiting [Unknown]
  - Retching [Unknown]
  - Fall [Unknown]
  - Gait disturbance [Unknown]
  - Head discomfort [Unknown]
  - Product administration interrupted [Unknown]

NARRATIVE: CASE EVENT DATE: 20240201
